FAERS Safety Report 14080603 (Version 1)
Quarter: 2017Q4

REPORT INFORMATION
  Report Type: Spontaneous
  Country: ES (occurrence: ES)
  Receive Date: 20171012
  Receipt Date: 20171012
  Transmission Date: 20180321
  Serious: Yes (Other)
  Sender: FDA-Public Use
  Company Number: ES-SA-2017SA191009

PATIENT
  Age: 71 Year
  Sex: Male

DRUGS (8)
  1. TRAMADOL/PARACETAMOL [Concomitant]
  2. 5-FU [Concomitant]
     Active Substance: FLUOROURACIL
  3. METFORMIN [Concomitant]
     Active Substance: METFORMIN HYDROCHLORIDE
  4. ZALTRAP [Suspect]
     Active Substance: ZIV-AFLIBERCEPT
     Indication: RECTAL ADENOCARCINOMA
     Route: 042
     Dates: start: 201702, end: 201702
  5. VALSARTAN. [Concomitant]
     Active Substance: VALSARTAN
  6. LEUCOVORIN. [Concomitant]
     Active Substance: LEUCOVORIN
  7. ZALTRAP [Suspect]
     Active Substance: ZIV-AFLIBERCEPT
     Indication: RECTAL ADENOCARCINOMA
     Route: 042
     Dates: start: 201705, end: 201705
  8. IRINOTECAN [Concomitant]
     Active Substance: IRINOTECAN

REACTIONS (5)
  - Asthenia [Unknown]
  - Mucosal inflammation [Unknown]
  - Hypertension [Unknown]
  - Cytopenia [Unknown]
  - Diarrhoea [Unknown]
